FAERS Safety Report 6218937-X (Version None)
Quarter: 2009Q2

REPORT INFORMATION
  Report Type: 
  Country: None (occurrence: None)
  Receive Date: 20090608
  Receipt Date: 20081118
  Transmission Date: 20091009
  Serious: Yes (Other)
  Sender: FDA-Public Use
  Company Number: GB-BAXTER-2008BH013403

PATIENT
  Age: 53 Year
  Sex: Male
  Weight: 87 kg

DRUGS (3)
  1. SODIUM CHLORIDE 0.9% IN PLASTIC CONTAINER [Suspect]
     Indication: INDWELLING CATHETER MANAGEMENT
     Route: 042
     Dates: start: 20081115, end: 20081115
  2. HEPARIN [Suspect]
     Indication: THROMBOSIS PROPHYLAXIS
     Route: 010
     Dates: start: 20081115, end: 20081115
  3. AZATHIOPRINE [Concomitant]
     Indication: PLATELET COUNT DECREASED
     Route: 065

REACTIONS (11)
  - ABDOMINAL PAIN [None]
  - ANXIETY [None]
  - BODY TEMPERATURE DECREASED [None]
  - CHILLS [None]
  - GROIN PAIN [None]
  - HYPERTENSION [None]
  - MALAISE [None]
  - NAUSEA [None]
  - SENSATION OF PRESSURE [None]
  - THERAPY CESSATION [None]
  - TYMPANIC MEMBRANE DISORDER [None]
